FAERS Safety Report 9326240 (Version 1)
Quarter: 2013Q2

REPORT INFORMATION
  Report Type: Spontaneous
  Country: BR (occurrence: BR)
  Receive Date: 20130604
  Receipt Date: 20130604
  Transmission Date: 20140414
  Serious: Yes (Hospitalization)
  Sender: FDA-Public Use
  Company Number: BR-ASTRAZENECA-2013SE38129

PATIENT
  Age: 66 Year
  Sex: Male
  Weight: 70 kg

DRUGS (4)
  1. CRESTOR [Suspect]
     Indication: BLOOD CHOLESTEROL INCREASED
     Route: 048
     Dates: start: 201303
  2. BRILINTA [Suspect]
     Indication: CORONARY ARTERY OCCLUSION
     Route: 048
     Dates: start: 201305
  3. BENICAR [Concomitant]
     Dosage: UNKNOWN
  4. ASPIRINA PREVENT [Concomitant]
     Dosage: UNKNOWN

REACTIONS (3)
  - Coronary artery occlusion [Recovered/Resolved]
  - Abdominal pain upper [Recovered/Resolved]
  - Off label use [Not Recovered/Not Resolved]
